FAERS Safety Report 9705623 (Version 1)
Quarter: 2013Q4

REPORT INFORMATION
  Report Type: Spontaneous
  Country: US (occurrence: US)
  Receive Date: 20131122
  Receipt Date: 20131122
  Transmission Date: 20140711
  Serious: No
  Sender: FDA-Public Use
  Company Number: US-GILEAD-2008-0017348

PATIENT
  Sex: Male
  Weight: 90.72 kg

DRUGS (10)
  1. LETAIRIS [Suspect]
     Indication: PULMONARY ARTERIAL HYPERTENSION
     Route: 048
     Dates: start: 20080128
  2. JANUVIA [Concomitant]
     Dosage: IN THE MORNING
     Route: 048
  3. LASIX [Concomitant]
     Route: 048
  4. ATENOLOL [Concomitant]
     Route: 048
  5. LISINOPRIL [Concomitant]
     Route: 048
  6. GLIPIZIDE [Concomitant]
     Route: 048
  7. ZANTAC [Concomitant]
     Route: 048
  8. ASCORBIC ACID [Concomitant]
     Route: 048
  9. FISH OIL [Concomitant]
     Route: 048
  10. MULTIVITAMIN [Concomitant]
     Route: 048

REACTIONS (2)
  - Oedema [None]
  - Constipation [None]
